FAERS Safety Report 4416673-3 (Version None)
Quarter: 2004Q2

REPORT INFORMATION
  Report Type: 
  Country: None (occurrence: None)
  Receive Date: 20040630
  Receipt Date: 20040408
  Transmission Date: 20050107
  Serious: Yes (Hospitalization)
  Sender: FDA-Public Use
  Company Number: 04P-163-0256896-00

PATIENT
  Sex: Female

DRUGS (9)
  1. HUMIRA [Suspect]
     Indication: PSORIATIC ARTHROPATHY
     Dosage: 40 MG 1 IN 2 WK SUBCUTANEOUS
     Route: 058
     Dates: start: 20031001
  2. METHOTREXATE SODIUM [Concomitant]
  3. ETANERCEPT [Concomitant]
  4. LEVOTHYROXINE SODIUM [Concomitant]
  5. FOLIC ACID [Concomitant]
  6. FENOFIBRATE [Concomitant]
  7. ENALAPRIL MALEATE [Concomitant]
  8. METOPROLOL TARTRATE [Concomitant]
  9. COUMADIN [Concomitant]

REACTIONS (3)
  - CHOLELITHIASIS [None]
  - CONDITION AGGRAVATED [None]
  - PSORIASIS [None]
